FAERS Safety Report 4932704-6 (Version None)
Quarter: 2006Q1

REPORT INFORMATION
  Report Type: 
  Country: None (occurrence: None)
  Receive Date: 20060301
  Receipt Date: 20060223
  Transmission Date: 20060701
  Serious: Yes (Hospitalization)
  Sender: FDA-Public Use
  Company Number: 2006BI001278

PATIENT
  Age: 70 Year
  Sex: Female

DRUGS (1)
  1. AVONEX [Suspect]
     Indication: MULTIPLE SCLEROSIS
     Dosage: 30 UG; QW; IM
     Route: 030
     Dates: start: 20021001

REACTIONS (5)
  - AMNESIA [None]
  - ANAEMIA [None]
  - HAEMORRHAGE [None]
  - INFECTION [None]
  - RESPIRATORY ARREST [None]
